FAERS Safety Report 20090362 (Version 1)
Quarter: 2021Q4

REPORT INFORMATION
  Report Type: Report from Study
  Country: US (occurrence: US)
  Receive Date: 20211119
  Receipt Date: 20211119
  Transmission Date: 20220303
  Serious: Yes (Other)
  Sender: FDA-Public Use
  Company Number: US-TAKEDA-2021TUS052799

PATIENT
  Weight: 73 kg

DRUGS (40)
  1. HUMAN IMMUNOGLOBULIN G [Suspect]
     Active Substance: HUMAN IMMUNOGLOBULIN G
     Indication: Encephalitis
     Dosage: 20 GRAM
     Route: 042
     Dates: start: 20210806
  2. HUMAN IMMUNOGLOBULIN G [Suspect]
     Active Substance: HUMAN IMMUNOGLOBULIN G
     Indication: Encephalitis
     Dosage: 20 GRAM
     Route: 042
     Dates: start: 20210806
  3. HUMAN IMMUNOGLOBULIN G [Suspect]
     Active Substance: HUMAN IMMUNOGLOBULIN G
     Indication: Encephalomyelitis
     Dosage: 20 GRAM
     Route: 042
     Dates: start: 20210203
  4. HUMAN IMMUNOGLOBULIN G [Suspect]
     Active Substance: HUMAN IMMUNOGLOBULIN G
     Indication: Encephalomyelitis
     Dosage: 20 GRAM
     Route: 042
     Dates: start: 20210203
  5. HUMAN IMMUNOGLOBULIN G [Suspect]
     Active Substance: HUMAN IMMUNOGLOBULIN G
     Indication: Neuromyopathy
  6. HUMAN IMMUNOGLOBULIN G [Suspect]
     Active Substance: HUMAN IMMUNOGLOBULIN G
     Indication: Neuromyopathy
  7. KETOTIFEN FUMARATE [Concomitant]
     Active Substance: KETOTIFEN FUMARATE
  8. WIXELA INHUB [Concomitant]
     Active Substance: FLUTICASONE PROPIONATE\SALMETEROL XINAFOATE
  9. HYDROXYZINE [Concomitant]
     Active Substance: HYDROXYZINE HYDROCHLORIDE
  10. FEXOFENADINE [Concomitant]
     Active Substance: FEXOFENADINE HYDROCHLORIDE
  11. METOCLOPRAMIDE [Concomitant]
     Active Substance: METOCLOPRAMIDE
  12. SYNTHROID [Concomitant]
     Active Substance: LEVOTHYROXINE SODIUM
  13. METHYLPREDNISOLONE [Concomitant]
     Active Substance: METHYLPREDNISOLONE
  14. ONDANSETRON [Concomitant]
     Active Substance: ONDANSETRON
  15. ALBUTEROL [Concomitant]
     Active Substance: ALBUTEROL
  16. FLUDROCORTISONE [Concomitant]
     Active Substance: FLUDROCORTISONE
  17. ESTRACE [Concomitant]
     Active Substance: ESTRADIOL
  18. PROBIOTICS NOS [Concomitant]
     Active Substance: PROBIOTICS NOS
  19. LAMOTRIGINE [Concomitant]
     Active Substance: LAMOTRIGINE
  20. VITAMIN D2 [Concomitant]
     Active Substance: ERGOCALCIFEROL
  21. CURCUMIN [Concomitant]
     Active Substance: CURCUMIN
  22. VITAMINS [Concomitant]
     Active Substance: VITAMINS
  23. MAGNESIUM [Concomitant]
     Active Substance: MAGNESIUM
  24. LIOTHYRONINE [Concomitant]
     Active Substance: LIOTHYRONINE
  25. VOLTAREN [Concomitant]
     Active Substance: DICLOFENAC SODIUM
  26. CLOBAZAM [Concomitant]
     Active Substance: CLOBAZAM
  27. ACETAMINOPHEN [Concomitant]
     Active Substance: ACETAMINOPHEN
     Route: 065
  28. DIPHENHYDRAMINE [Concomitant]
     Active Substance: DIPHENHYDRAMINE
     Route: 065
  29. HEPARIN [Concomitant]
     Active Substance: HEPARIN SODIUM
     Route: 065
  30. KETOROLAC [Concomitant]
     Active Substance: KETOROLAC TROMETHAMINE
     Route: 065
  31. TROMETHAMINE [Concomitant]
     Active Substance: TROMETHAMINE
     Route: 065
  32. LIDOCAINE [Concomitant]
     Active Substance: LIDOCAINE
     Route: 065
  33. SALINE [Concomitant]
     Active Substance: SODIUM CHLORIDE
     Route: 065
  34. SODIUM CHLORIDE [Concomitant]
     Active Substance: SODIUM CHLORIDE
     Route: 065
  35. EPINEPHRINE [Concomitant]
     Active Substance: EPINEPHRINE
     Route: 065
  36. METRONIDAZOLE AGIO [Concomitant]
  37. REGLAN [Concomitant]
     Active Substance: METOCLOPRAMIDE HYDROCHLORIDE
     Route: 065
  38. TORADOL [Concomitant]
     Active Substance: KETOROLAC TROMETHAMINE
     Route: 065
  39. KETOTIFEN [Concomitant]
     Active Substance: KETOTIFEN
     Route: 065
  40. DISODIUM FUMARATE [Concomitant]
     Active Substance: DISODIUM FUMARATE
     Route: 065

REACTIONS (8)
  - Thrombosis [Unknown]
  - Dyspnoea [Unknown]
  - Chest discomfort [Unknown]
  - Fluid retention [Unknown]
  - Gastrointestinal inflammation [Unknown]
  - Bronchospasm [Unknown]
  - Off label use [Unknown]
  - Product dose omission issue [Unknown]
